FAERS Safety Report 6749345-0 (Version None)
Quarter: 2010Q2

REPORT INFORMATION
  Report Type: 
  Country: None (occurrence: None)
  Receive Date: 20100601
  Receipt Date: 20100524
  Transmission Date: 20101027
  Serious: Yes (Hospitalization, Other)
  Sender: FDA-Public Use
  Company Number: US-ROCHE-691346

PATIENT
  Sex: Male
  Weight: 91.6 kg

DRUGS (6)
  1. BEVACIZUMAB [Suspect]
     Indication: LUNG CANCER METASTATIC
     Dosage: STRENGTS REPORTED AS 15 MG/KG
     Route: 042
     Dates: start: 20100208, end: 20100208
  2. CISPLATIN [Suspect]
     Indication: LUNG CANCER METASTATIC
     Dosage: STRENGTH REPORTED AS 75 MG/M2
     Route: 042
     Dates: start: 20100208, end: 20100208
  3. PEMETREXED [Concomitant]
     Dates: start: 20100208
  4. ATENOLOL [Concomitant]
  5. IMODIUM [Concomitant]
  6. AMLODIPINE [Concomitant]

REACTIONS (4)
  - ANAEMIA [None]
  - BLOOD CREATININE INCREASED [None]
  - FLANK PAIN [None]
  - RENAL FAILURE ACUTE [None]
